FAERS Safety Report 4374626-8 (Version None)
Quarter: 2004Q2

REPORT INFORMATION
  Report Type: 
  Country: None (occurrence: None)
  Receive Date: 20040602
  Receipt Date: 20040203
  Transmission Date: 20050107
  Serious: No
  Sender: FDA-Public Use
  Company Number: 200412246BWH

PATIENT
  Age: 60 Year
  Sex: Male
  Weight: 83.9154 kg

DRUGS (11)
  1. LEVITRA [Suspect]
     Indication: ERECTILE DYSFUNCTION
     Dosage: 10 MG, ONCE,
     Route: 048
     Dates: start: 20040201
  2. VIAGRA [Concomitant]
  3. HYTRIN [Concomitant]
  4. LOTREL [Concomitant]
  5. PROTONIX [Concomitant]
  6. SAW PALMETTO [Concomitant]
  7. VITAMIN E [Concomitant]
  8. VITAMIN C [Concomitant]
  9. ALLEGRA [Concomitant]
  10. CALCIUM CITRATE [Concomitant]
  11. ACETAMINOPHEN [Concomitant]

REACTIONS (3)
  - ERECTILE DYSFUNCTION [None]
  - ERYTHEMA [None]
  - HEADACHE [None]
